FAERS Safety Report 9782757 (Version 1)
Quarter: 2013Q4

REPORT INFORMATION
  Report Type: Spontaneous
  Country: US (occurrence: US)
  Receive Date: 20131226
  Receipt Date: 20131226
  Transmission Date: 20140711
  Serious: No
  Sender: FDA-Public Use
  Company Number: US-ABBVIE-13P-163-1084712-00

PATIENT
  Age: 77 Year
  Sex: Male
  Weight: 87.17 kg

DRUGS (9)
  1. LUPRON DEPOT [Suspect]
     Indication: PROSTATE CANCER
     Route: 030
     Dates: start: 201111, end: 201111
  2. LUPRON DEPOT [Suspect]
     Route: 030
  3. LUPRON DEPOT [Suspect]
     Indication: PROSTATE CANCER
     Route: 030
     Dates: start: 201112
  4. CASODEX [Concomitant]
     Indication: PRODUCT USED FOR UNKNOWN INDICATION
  5. LISINOPRIL [Concomitant]
     Indication: HYPERTENSION
     Route: 048
  6. ATROVASTATIN (GENERIC LIPITOR) [Concomitant]
     Indication: BLOOD CHOLESTEROL INCREASED
     Route: 048
  7. CUMIN [Concomitant]
     Indication: SUPPLEMENTATION THERAPY
  8. VITAMIN D NOS [Concomitant]
     Indication: VITAMIN SUPPLEMENTATION
  9. OTHER UNKNOWN SUPPLEMENTS [Concomitant]
     Indication: SUPPLEMENTATION THERAPY

REACTIONS (14)
  - Injection site swelling [Recovering/Resolving]
  - Injection site inflammation [Recovering/Resolving]
  - Injection site pain [Recovering/Resolving]
  - Injection site nodule [Recovering/Resolving]
  - Injection site swelling [Recovered/Resolved]
  - Furuncle [Recovered/Resolved]
  - Injection site infection [Recovered/Resolved]
  - Scar [Not Recovered/Not Resolved]
  - Erythema [Recovered/Resolved]
  - Injection site swelling [Recovering/Resolving]
  - Injection site nodule [Unknown]
  - Injection site pain [Recovering/Resolving]
  - Injection site infection [Unknown]
  - Scar [Unknown]
